FAERS Safety Report 6451428-X (Version None)
Quarter: 2009Q4

REPORT INFORMATION
  Report Type: 
  Country: None (occurrence: None)
  Receive Date: 20091123
  Receipt Date: 20081029
  Transmission Date: 20100525
  Serious: Yes (Other)
  Sender: FDA-Public Use
  Company Number: US-BRISTOL-MYERS SQUIBB COMPANY-14351126

PATIENT
  Age: 74 Year
  Sex: Female

DRUGS (4)
  1. AVALIDE [Suspect]
  2. OCUVITE LUTEIN [Suspect]
     Dosage: 1 DOSAGE FORM = 1 CAPSULE FORM = CAPS
  3. CENTRUM SILVER [Suspect]
  4. VITAMINS [Concomitant]

REACTIONS (1)
  - HYPERSENSITIVITY [None]
